FAERS Safety Report 22924801 (Version 2)
Quarter: 2023Q4

REPORT INFORMATION
  Report Type: Spontaneous
  Country: US (occurrence: US)
  Receive Date: 20230908
  Receipt Date: 20231207
  Transmission Date: 20240110
  Serious: No
  Sender: FDA-Public Use
  Company Number: US-NEUROCRINE BIOSCIENCES INC.-2023NBI07362

PATIENT

DRUGS (15)
  1. INGREZZA [Suspect]
     Active Substance: VALBENAZINE
     Indication: Tardive dyskinesia
     Dosage: 40 MILLIGRAM, QD
     Route: 048
     Dates: start: 202308, end: 202308
  2. BUSPIRONE [Concomitant]
     Active Substance: BUSPIRONE HYDROCHLORIDE
     Dosage: 1 DOSAGE FORM, TID
     Route: 048
     Dates: start: 20230822
  3. ALLERGY RELIEF [LORATADINE] [Concomitant]
     Dosage: 1 DOSAGE FORM AT 8 AM
     Route: 048
     Dates: start: 20230818
  4. PALIPERIDONE PALMITATE [Concomitant]
     Active Substance: PALIPERIDONE PALMITATE
     Dosage: 1 MILLILITER, QD
     Route: 030
     Dates: start: 20230731
  5. BENZONATATE [Concomitant]
     Active Substance: BENZONATATE
     Indication: Cough
     Dosage: 1 DOSAGE FORM, TID
     Route: 048
     Dates: start: 20230718
  6. ALBUTEROL SULFATE [Concomitant]
     Active Substance: ALBUTEROL SULFATE
     Indication: Cough
     Dosage: 1 PUFF EVERY 4 HOURS, PRN
     Dates: start: 20230718
  7. ALBUTEROL SULFATE [Concomitant]
     Active Substance: ALBUTEROL SULFATE
     Indication: Wheezing
  8. DIPHENHYDRAMINE [Concomitant]
     Active Substance: DIPHENHYDRAMINE
     Indication: Pruritus
     Dosage: 1 DOSAGE FORM, TID
     Route: 048
     Dates: start: 20230718
  9. POLYETHYLENE GLYCOL 3350 [Concomitant]
     Active Substance: POLYETHYLENE GLYCOL 3350
     Dosage: 1 PACKET DAILY
     Route: 048
     Dates: start: 20230718
  10. VARENICLINE [Concomitant]
     Active Substance: VARENICLINE
     Dosage: 1 DOSAGE FORM, BID
     Route: 048
     Dates: start: 20230627
  11. OXYBUTYNIN CHLORIDE [Concomitant]
     Active Substance: OXYBUTYNIN CHLORIDE
     Dosage: 1 DOSAGE FORM, QD
     Route: 048
     Dates: start: 20230206
  12. ROSUVASTATIN [Concomitant]
     Active Substance: ROSUVASTATIN
     Dosage: 1 DOSAGE FORM, QOD
     Route: 048
     Dates: start: 20230206
  13. NICOTINE POLACRILEX [Concomitant]
     Active Substance: NICOTINE
     Dosage: 1 DOSAGE FORM, QD
     Route: 048
     Dates: start: 20230112
  14. FLUTICASONE PROPIONATE [Concomitant]
     Active Substance: FLUTICASONE PROPIONATE
     Dosage: 2 SPRAYS QD
     Route: 045
     Dates: start: 20221005
  15. NICOTINE [Concomitant]
     Active Substance: NICOTINE
     Dosage: 14 MG/24 HR, 1 PATCH QD
     Route: 062
     Dates: start: 20220906

REACTIONS (2)
  - Hypoaesthesia [Recovered/Resolved]
  - Rash [Recovered/Resolved]

NARRATIVE: CASE EVENT DATE: 20230820
